FAERS Safety Report 26191040 (Version 1)
Quarter: 2025Q4

REPORT INFORMATION
  Report Type: Spontaneous
  Country: EU (occurrence: EU)
  Receive Date: 20251223
  Receipt Date: 20251223
  Transmission Date: 20260117
  Serious: Yes (Congenital Anomaly)
  Sender: MERCK KGAA
  Company Number: EU-Merck Healthcare KGaA-2025065010

PATIENT
  Age: 37 Year
  Sex: Female

DRUGS (1)
  1. MAVENCLAD [Suspect]
     Active Substance: CLADRIBINE
     Indication: Relapsing-remitting multiple sclerosis
     Dosage: YEAR ONE THERAPY?DOSE AND FREQUENCY: 3.5MG/KILOGRAM

REACTIONS (3)
  - Teratogenicity [Recovered/Resolved]
  - Dysplasia [Recovered/Resolved]
  - Maternal exposure before pregnancy [Recovered/Resolved]
